FAERS Safety Report 9301952 (Version 1)
Quarter: 2013Q2

REPORT INFORMATION
  Report Type: Spontaneous
  Country: JP (occurrence: JP)
  Receive Date: 20130521
  Receipt Date: 20130521
  Transmission Date: 20140414
  Serious: Yes (Life-Threatening, Hospitalization)
  Sender: FDA-Public Use
  Company Number: JP-MYLANLABS-2013S1010356

PATIENT
  Age: 51 Year
  Sex: Male

DRUGS (1)
  1. PAROXETINE [Suspect]
     Indication: DEPRESSION
     Dosage: 20 MG/DAY
     Route: 065

REACTIONS (4)
  - Idiopathic thrombocytopenic purpura [Recovering/Resolving]
  - Condition aggravated [Recovering/Resolving]
  - Treatment failure [Recovering/Resolving]
  - Pulmonary alveolar haemorrhage [Unknown]
